FAERS Safety Report 12651606 (Version 3)
Quarter: 2018Q2

REPORT INFORMATION
  Report Type: Spontaneous
  Country: US (occurrence: US)
  Receive Date: 20160815
  Receipt Date: 20180502
  Transmission Date: 20180711
  Serious: Yes (Hospitalization)
  Sender: FDA-Public Use
  Company Number: US-ENDO PHARMACEUTICALS INC.-2016-003554

PATIENT
  Age: 64 Year
  Sex: Male
  Weight: 94.89 kg

DRUGS (3)
  1. LOVASTATIN. [Concomitant]
     Active Substance: LOVASTATIN
     Indication: HYPERLIPIDAEMIA
     Dosage: UNK UNKNOWN, UNKNOWN
     Route: 065
     Dates: start: 201109, end: 201411
  2. FORTESTA [Suspect]
     Active Substance: TESTOSTERONE
     Indication: ANDROGEN REPLACEMENT THERAPY
     Dosage: UNK UNKNOWN, OD
     Route: 061
     Dates: start: 20130709, end: 20140522
  3. RAMIPRIL. [Concomitant]
     Active Substance: RAMIPRIL
     Indication: HYPERTENSION
     Dosage: UNK UNKNOWN, UNKNOWN
     Route: 065
     Dates: start: 200901, end: 201411

REACTIONS (6)
  - Cardiac failure congestive [Unknown]
  - Rhabdomyolysis [Unknown]
  - Pneumonia [Unknown]
  - Pulmonary embolism [Unknown]
  - Acute myocardial infarction [Unknown]
  - Bundle branch block left [Unknown]

NARRATIVE: CASE EVENT DATE: 20140527
